FAERS Safety Report 26096521 (Version 1)
Quarter: 2025Q4

REPORT INFORMATION
  Report Type: Spontaneous
  Country: EU (occurrence: EU)
  Receive Date: 20251127
  Receipt Date: 20251127
  Transmission Date: 20260118
  Serious: Yes (Hospitalization)
  Sender: RANBAXY
  Company Number: EU-AFSSAPS-MP2025001164

PATIENT
  Sex: Female

DRUGS (2)
  1. MORPHINE [Suspect]
     Active Substance: MORPHINE
     Indication: Pain
     Dosage: 10 MILLIGRAM, IN TOTAL
     Route: 040
     Dates: start: 20250708, end: 20250708
  2. MIDAZOLAM [Suspect]
     Active Substance: MIDAZOLAM
     Indication: Pain
     Dosage: 2 MILLIGRAM, IN TOTAL
     Route: 040
     Dates: start: 20250708, end: 20250708

REACTIONS (3)
  - Coma [Recovering/Resolving]
  - Product prescribing error [Recovered/Resolved]
  - Increased dose administered [Recovered/Resolved]

NARRATIVE: CASE EVENT DATE: 20250708
